FAERS Safety Report 6954422-5 (Version None)
Quarter: 2010Q3

REPORT INFORMATION
  Report Type: 
  Country: None (occurrence: None)
  Receive Date: 20100829
  Receipt Date: 20100719
  Transmission Date: 20110219
  Serious: No
  Sender: FDA-Public Use
  Company Number: US-ABBOTT-10P-163-0658654-00

PATIENT
  Sex: Female

DRUGS (4)
  1. NIASPAN [Suspect]
     Indication: BLOOD CHOLESTEROL INCREASED
     Dates: start: 20100712
  2. VERAPAMIL [Concomitant]
     Indication: HYPERTENSION
  3. LEVOTHYROXINE SODIUM [Concomitant]
     Indication: HYPOTHYROIDISM
  4. RECLAST [Concomitant]
     Indication: OSTEOPOROSIS

REACTIONS (3)
  - HEADACHE [None]
  - NAUSEA [None]
  - VISION BLURRED [None]
